FAERS Safety Report 17218400 (Version 1)
Quarter: 2019Q4

REPORT INFORMATION
  Report Type: Spontaneous
  Country: US (occurrence: US)
  Receive Date: 20191207
  Receipt Date: 20191207
  Transmission Date: 20200122
  Serious: No
  Sender: FDA-Public Use
  Company Number: None

PATIENT
  Age: 38 Year
  Sex: Female

DRUGS (1)
  1. MAKENA [Suspect]
     Active Substance: HYDROXYPROGESTERONE CAPROATE
     Dosage: STRENGTH 275MG/1.1M ?DOSE 275MG/1.1 ML
     Route: 058
     Dates: start: 20191119

REACTIONS (2)
  - Injection site mass [None]
  - Hypersensitivity [None]

NARRATIVE: CASE EVENT DATE: 20191119
